FAERS Safety Report 9592822 (Version 1)
Quarter: 2013Q3

REPORT INFORMATION
  Report Type: Spontaneous
  Country: US (occurrence: None)
  Receive Date: 20130930
  Receipt Date: 20130930
  Transmission Date: 20140515
  Serious: Yes (Other)
  Sender: FDA-Public Use
  Company Number: 1000045979

PATIENT
  Age: 71 Year
  Sex: Female

DRUGS (1)
  1. LINZESS [Suspect]
     Indication: ABDOMINAL PAIN
     Dosage: 290 MCG (290 MCG, 1 IN 1 D), ORAL
     Route: 048
     Dates: start: 20130613

REACTIONS (3)
  - Off label use [None]
  - Abdominal pain [None]
  - Diarrhoea [None]
